FAERS Safety Report 9312017 (Version 1)
Quarter: 2013Q2

REPORT INFORMATION
  Report Type: Spontaneous
  Country: AU (occurrence: AU)
  Receive Date: 20130528
  Receipt Date: 20130528
  Transmission Date: 20140414
  Serious: Yes (Other)
  Sender: FDA-Public Use
  Company Number: PHHY2013AU052922

PATIENT
  Sex: Male

DRUGS (2)
  1. EXFORGE [Suspect]
     Dosage: 160 MG VALS AND 10 MG AMLO
  2. EFFEXOR-XR [Concomitant]
     Dosage: UNK UKN, UNK

REACTIONS (2)
  - Cardiac arrest [Unknown]
  - Ventricular fibrillation [Unknown]
